FAERS Safety Report 6268997-5 (Version None)
Quarter: 2009Q3

REPORT INFORMATION
  Report Type: 
  Country: None (occurrence: None)
  Receive Date: 20090715
  Receipt Date: 20090706
  Transmission Date: 20100115
  Serious: Yes (Hospitalization)
  Sender: FDA-Public Use
  Company Number: A0795507A

PATIENT
  Sex: Female

DRUGS (5)
  1. REQUIP [Suspect]
     Indication: PARKINSON'S DISEASE
     Dosage: 3MG FIVE TIMES PER DAY
     Route: 048
     Dates: start: 20080701
  2. UNKNOWN MEDICATION [Concomitant]
  3. SINEMET CR [Concomitant]
  4. EFFEXOR [Concomitant]
  5. MIDAZOLAM HCL [Concomitant]

REACTIONS (3)
  - INAPPROPRIATE SCHEDULE OF DRUG ADMINISTRATION [None]
  - ORTHOSTATIC HYPOTENSION [None]
  - SYNCOPE [None]
